FAERS Safety Report 7394914-0 (Version None)
Quarter: 2011Q2

REPORT INFORMATION
  Report Type: 
  Country: None (occurrence: None)
  Receive Date: 20110405
  Receipt Date: 20110324
  Transmission Date: 20111010
  Serious: Yes (Hospitalization)
  Sender: FDA-Public Use
  Company Number: B0709987A

PATIENT
  Age: 41 Year
  Sex: Female
  Weight: 94.9 kg

DRUGS (1)
  1. MARAVIROC [Suspect]

REACTIONS (1)
  - ASTHMA [None]
